FAERS Safety Report 6758943-X (Version None)
Quarter: 2010Q2

REPORT INFORMATION
  Report Type: 
  Country: None (occurrence: None)
  Receive Date: 20100607
  Receipt Date: 20100506
  Transmission Date: 20101027
  Serious: No
  Sender: FDA-Public Use
  Company Number: US-BAYER-201015298BCC

PATIENT
  Age: 72 Year
  Sex: Female
  Weight: 57 kg

DRUGS (4)
  1. ALEVE (CAPLET) [Suspect]
     Indication: ARTHRALGIA
     Dosage: TOTAL DAILY DOSE: 880 MG  UNIT DOSE: 220 MG
     Route: 048
     Dates: start: 20100430
  2. ACTONEL [Concomitant]
     Route: 065
  3. SYNTHROID [Concomitant]
     Route: 065
  4. DILTIAZEM [Concomitant]
     Route: 065

REACTIONS (2)
  - FATIGUE [None]
  - SOMNOLENCE [None]
